FAERS Safety Report 14258309 (Version 1)
Quarter: 2017Q4

REPORT INFORMATION
  Report Type: Spontaneous
  Country: NL (occurrence: NL)
  Receive Date: 20171207
  Receipt Date: 20171207
  Transmission Date: 20180321
  Serious: Yes (Other)
  Sender: FDA-Public Use
  Company Number: NL-CIPLA LTD.-2017NL22317

PATIENT

DRUGS (2)
  1. GENTAMICIN. [Interacting]
     Active Substance: GENTAMICIN
     Dosage: UNK
     Route: 042
  2. CARBOPLATIN. [Suspect]
     Active Substance: CARBOPLATIN
     Indication: CONGENITAL RETINOBLASTOMA
     Dosage: UNK, 4 COURSES
     Route: 042

REACTIONS (2)
  - Drug interaction [Unknown]
  - Deafness neurosensory [Unknown]
